FAERS Safety Report 23034441 (Version 1)
Quarter: 2023Q4

REPORT INFORMATION
  Report Type: Spontaneous
  Country: FR (occurrence: FR)
  Receive Date: 20231005
  Receipt Date: 20231005
  Transmission Date: 20240110
  Serious: Yes (Hospitalization, Other)
  Sender: FDA-Public Use
  Company Number: FR-AFSSAPS-CN2023000505

PATIENT
  Age: 28 Year
  Sex: Female
  Weight: 52 kg

DRUGS (4)
  1. SERTRALINE [Suspect]
     Active Substance: SERTRALINE HYDROCHLORIDE
     Indication: Product used for unknown indication
     Dosage: UNKNOWN
     Route: 048
     Dates: start: 202305, end: 202305
  2. VENLAFAXINE [Suspect]
     Active Substance: VENLAFAXINE HYDROCHLORIDE
     Indication: Product used for unknown indication
     Dosage: UNKNOWN
     Route: 048
     Dates: start: 202305, end: 202305
  3. OXAZEPAM [Suspect]
     Active Substance: OXAZEPAM
     Indication: Suspected suicide attempt
     Dosage: UNKNOWN
     Route: 048
     Dates: start: 202305, end: 202305
  4. NAPROXEN [Concomitant]
     Active Substance: NAPROXEN
     Indication: Product used for unknown indication
     Dosage: UNKNNOWN
     Route: 048
     Dates: start: 202305, end: 202305

REACTIONS (2)
  - Hypoglycaemic coma [Not Recovered/Not Resolved]
  - Suicide attempt [Unknown]

NARRATIVE: CASE EVENT DATE: 20230526
